FAERS Safety Report 19840030 (Version 1)
Quarter: 2021Q3

REPORT INFORMATION
  Report Type: Spontaneous
  Country: US (occurrence: US)
  Receive Date: 20210915
  Receipt Date: 20210915
  Transmission Date: 20211014
  Serious: Yes (Other)
  Sender: FDA-Public Use
  Company Number: US-ROCHE-2908473

PATIENT

DRUGS (1)
  1. ACTEMRA [Suspect]
     Active Substance: TOCILIZUMAB
     Indication: GIANT CELL ARTERITIS
     Route: 065

REACTIONS (6)
  - Lung disorder [Unknown]
  - Immunosuppression [Unknown]
  - Paralysis [Unknown]
  - COVID-19 [Unknown]
  - Swelling [Unknown]
  - Pain [Unknown]
